FAERS Safety Report 24351452 (Version 1)
Quarter: 2024Q3

REPORT INFORMATION
  Report Type: Report from Study
  Country: US (occurrence: US)
  Receive Date: 20240923
  Receipt Date: 20240923
  Transmission Date: 20241017
  Serious: No
  Sender: ROCHE
  Company Number: US-ROCHE-3548317

PATIENT
  Age: 77 Year
  Sex: Female
  Weight: 46.27 kg

DRUGS (15)
  1. HERCEPTIN [Suspect]
     Active Substance: TRASTUZUMAB
     Indication: Breast cancer female
     Dosage: VIAL?SUBSEQUENT DOSE ON 17/JAN/2022
     Route: 041
     Dates: start: 20210916, end: 20220118
  2. HERCEPTIN [Suspect]
     Active Substance: TRASTUZUMAB
     Indication: Oestrogen receptor assay positive
  3. HERCEPTIN [Suspect]
     Active Substance: TRASTUZUMAB
     Indication: Metastases to bone
  4. PERJETA [Suspect]
     Active Substance: PERTUZUMAB
     Indication: Breast cancer female
     Dosage: VIAL, SUBSEQUENT DOSE ON : 17/JAN/2022
     Route: 042
     Dates: start: 20210826, end: 20220117
  5. PERJETA [Suspect]
     Active Substance: PERTUZUMAB
     Indication: Oestrogen receptor assay positive
  6. PERJETA [Suspect]
     Active Substance: PERTUZUMAB
     Indication: Metastases to bone
  7. PHESGO [Suspect]
     Active Substance: HYALURONIDASE-ZZXF\PERTUZUMAB\TRASTUZUMAB
     Indication: Breast cancer female
     Route: 065
  8. PHESGO [Suspect]
     Active Substance: HYALURONIDASE-ZZXF\PERTUZUMAB\TRASTUZUMAB
     Indication: Oestrogen receptor assay positive
  9. PHESGO [Suspect]
     Active Substance: HYALURONIDASE-ZZXF\PERTUZUMAB\TRASTUZUMAB
     Indication: Metastases to bone
  10. LETROZOLE [Concomitant]
     Active Substance: LETROZOLE
  11. ONDANSETRON HYDROCHLORIDE [Concomitant]
     Active Substance: ONDANSETRON HYDROCHLORIDE
  12. PROCHLORPERAZINE [Concomitant]
     Active Substance: PROCHLORPERAZINE
  13. OMEPRAZOLE [Concomitant]
     Active Substance: OMEPRAZOLE
  14. ROSUVASTATIN CALCIUM [Concomitant]
     Active Substance: ROSUVASTATIN CALCIUM
  15. XGEVA [Concomitant]
     Active Substance: DENOSUMAB

REACTIONS (2)
  - Malaise [Not Recovered/Not Resolved]
  - Off label use [Unknown]
